FAERS Safety Report 8078234-7 (Version None)
Quarter: 2012Q1

REPORT INFORMATION
  Report Type: 
  Country: None (occurrence: None)
  Receive Date: 20120123
  Receipt Date: 20120110
  Transmission Date: 20120608
  Serious: Yes (Hospitalization, Other)
  Sender: FDA-Public Use
  Company Number: INT_00048_2012

PATIENT
  Age: 11 Year
  Sex: Female

DRUGS (1)
  1. CEFTIRIAXONE [Suspect]
     Indication: LYME DISEASE
     Dosage: (DF INTRAVENOUS (NOT OTHERWISE SPECIFIED)
     Route: 042

REACTIONS (19)
  - DECREASED APPETITE [None]
  - DEHYDRATION [None]
  - TACHYCARDIA [None]
  - RENAL FAILURE [None]
  - ADVERSE DRUG REACTION [None]
  - PROTEINURIA [None]
  - HAEMODIALYSIS [None]
  - CHILLS [None]
  - INTRAVASCULAR HAEMOLYSIS [None]
  - HAEMOLYTIC ANAEMIA [None]
  - PYREXIA [None]
  - DEVICE RELATED INFECTION [None]
  - NORMOCHROMIC NORMOCYTIC ANAEMIA [None]
  - RENAL TUBULAR NECROSIS [None]
  - GASTROENTERITIS VIRAL [None]
  - KIDNEY ENLARGEMENT [None]
  - ARTHRALGIA [None]
  - CONDITION AGGRAVATED [None]
  - BLOOD LACTATE DEHYDROGENASE INCREASED [None]
